FAERS Safety Report 20552662 (Version 1)
Quarter: 2022Q1

REPORT INFORMATION
  Report Type: Spontaneous
  Country: US (occurrence: US)
  Receive Date: 20220304
  Receipt Date: 20220304
  Transmission Date: 20220424
  Serious: Yes (Other)
  Sender: FDA-Public Use
  Company Number: US-SA-SAC20220302001770

PATIENT
  Age: 40 Year
  Sex: Female

DRUGS (1)
  1. ZANTAC [Suspect]
     Active Substance: RANITIDINE HYDROCHLORIDE
     Indication: Dyspepsia
     Dosage: QD, UNK
     Dates: start: 200001, end: 200501

REACTIONS (3)
  - Ovarian cancer stage I [Unknown]
  - Pancreatic carcinoma [Unknown]
  - Uterine cancer [Unknown]

NARRATIVE: CASE EVENT DATE: 20070101
